FAERS Safety Report 14151697 (Version 1)
Quarter: 2017Q4

REPORT INFORMATION
  Report Type: Spontaneous
  Country: US (occurrence: US)
  Receive Date: 20171102
  Receipt Date: 20171102
  Transmission Date: 20180321
  Serious: Yes (Life-Threatening, Other)
  Sender: FDA-Public Use
  Company Number: US-AUROBINDO-AUR-APL-2017-42883

PATIENT
  Age: 61 Year
  Sex: Female

DRUGS (2)
  1. COBALT HV BONE CEMENT [Concomitant]
     Indication: ARTHRITIS INFECTIVE
  2. VANCOMYCIN [Suspect]
     Active Substance: VANCOMYCIN
     Indication: ARTHRITIS INFECTIVE

REACTIONS (1)
  - Autoimmune haemolytic anaemia [Recovered/Resolved]
